FAERS Safety Report 5911422-1 (Version None)
Quarter: 2008Q4

REPORT INFORMATION
  Report Type: 
  Country: None (occurrence: None)
  Receive Date: 20081002
  Receipt Date: 20080925
  Transmission Date: 20090506
  Serious: Yes (Death)
  Sender: FDA-Public Use
  Company Number: 034400

PATIENT
  Age: 45 Year
  Sex: Female
  Weight: 57.1 kg

DRUGS (10)
  1. TRAZODONE HCL [Suspect]
     Dosage: 1 TABLET, QHS, ORAL
     Route: 048
     Dates: end: 20080101
  2. ONDANSETRON HCL [Suspect]
     Dates: end: 20080101
  3. LITHIUM CARBONATE [Suspect]
     Dosage: 500 MG, TID, ORAL
     Route: 048
     Dates: end: 20080101
  4. KADIAN(MORPHINE SULFATE) 60 MG [Suspect]
     Indication: BACK PAIN
     Dosage: 1 CAP, BID, ORAL
     Route: 048
     Dates: start: 20080424, end: 20080501
  5. PERCOCET [Suspect]
     Indication: PAIN
     Dosage: 1 TABLET, Q4HR-Q6HR, PRN, ORAL
     Route: 048
     Dates: end: 20080101
  6. ZOLPIDEM TARTRATE [Suspect]
     Dates: end: 20080101
  7. MEPROBAMATE [Suspect]
     Dates: end: 20080101
  8. PROMETHAZINE [Suspect]
     Dates: end: 20080101
  9. RANITIDINE [Suspect]
     Dates: end: 20080101
  10. KLONOPIN [Suspect]
     Dosage: 1 TABLET, TID, ORAL
     Route: 048
     Dates: end: 20080101

REACTIONS (25)
  - ACCIDENTAL DEATH [None]
  - ATELECTASIS [None]
  - BRONCHIAL SECRETION RETENTION [None]
  - CONSTIPATION [None]
  - CONTUSION [None]
  - CORONARY ARTERY DISEASE [None]
  - DRUG TOXICITY [None]
  - ECCHYMOSIS [None]
  - EXCORIATION [None]
  - HEPATIC CIRRHOSIS [None]
  - HEPATIC CONGESTION [None]
  - HEPATIC STEATOSIS [None]
  - HYPERPLASIA [None]
  - LOSS OF CONSCIOUSNESS [None]
  - MYOCARDIAL FIBROSIS [None]
  - PITTING OEDEMA [None]
  - PULMONARY CONGESTION [None]
  - PULMONARY OEDEMA [None]
  - RENAL DISORDER [None]
  - SCAB [None]
  - SWELLING FACE [None]
  - SYNCOPE [None]
  - TRAUMATIC HAEMATOMA [None]
  - VICTIM OF SEXUAL ABUSE [None]
  - VISCERAL OEDEMA [None]
